FAERS Safety Report 8161272-3 (Version None)
Quarter: 2012Q1

REPORT INFORMATION
  Report Type: 
  Country: None (occurrence: None)
  Receive Date: 20120222
  Receipt Date: 20120222
  Transmission Date: 20120608
  Serious: Yes (Hospitalization)
  Sender: FDA-Public Use
  Company Number: None

PATIENT
  Sex: Male
  Weight: 83.75 kg

DRUGS (1)
  1. CISPLATIN [Suspect]
     Dosage: 200 MG

REACTIONS (6)
  - MUCOSAL INFLAMMATION [None]
  - NAUSEA [None]
  - DEHYDRATION [None]
  - VOMITING [None]
  - DYSPHAGIA [None]
  - PAIN [None]
